FAERS Safety Report 4727469-7 (Version None)
Quarter: 2005Q3

REPORT INFORMATION
  Report Type: 
  Country: None (occurrence: None)
  Receive Date: 20050727
  Receipt Date: 20050727
  Transmission Date: 20060218
  Serious: Yes (Hospitalization)
  Sender: FDA-Public Use
  Company Number: None

PATIENT
  Age: 75 Year
  Sex: Male
  Weight: 86.1834 kg

DRUGS (10)
  1. IBUPROFEN [Suspect]
     Indication: ARTHRALGIA
     Dosage: 800 MG PO TID
     Route: 048
  2. ASPIRIN [Suspect]
     Indication: CARDIAC DISORDER
     Dosage: 325 MG PO DAILY
     Route: 048
  3. GLUCOPHAGE [Concomitant]
  4. COREG [Concomitant]
  5. PLETAL [Concomitant]
  6. LASIX [Concomitant]
  7. VITAMIN [Concomitant]
  8. VIT C [Concomitant]
  9. VIT E [Concomitant]
  10. METFORMIN [Concomitant]

REACTIONS (5)
  - CHEST PAIN [None]
  - DIZZINESS [None]
  - GASTRIC ULCER [None]
  - GASTROINTESTINAL HAEMORRHAGE [None]
  - HAEMODYNAMIC INSTABILITY [None]
